FAERS Safety Report 4717123-X (Version None)
Quarter: 2005Q3

REPORT INFORMATION
  Report Type: 
  Country: None (occurrence: None)
  Receive Date: 20050715
  Receipt Date: 20050707
  Transmission Date: 20060218
  Serious: Yes (Other)
  Sender: FDA-Public Use
  Company Number: HQWYE106611JUL05

PATIENT
  Age: 53 Year
  Sex: Female

DRUGS (1)
  1. ADVIL [Suspect]
     Indication: DRUG USE FOR UNKNOWN INDICATION
     Dosage: AS NEEDED, ORAL
     Route: 048
     Dates: start: 20050706, end: 20050706

REACTIONS (2)
  - ANAPHYLACTIC REACTION [None]
  - BLINDNESS TRANSIENT [None]
